FAERS Safety Report 12852234 (Version 1)
Quarter: 2016Q4

REPORT INFORMATION
  Report Type: Spontaneous
  Country: US (occurrence: US)
  Receive Date: 20161014
  Receipt Date: 20161014
  Transmission Date: 20170207
  Serious: Yes (Other)
  Sender: FDA-Public Use
  Company Number: None

PATIENT
  Age: 34 Year
  Sex: Female
  Weight: 49.5 kg

DRUGS (1)
  1. NUVARING [Suspect]
     Active Substance: ETHINYL ESTRADIOL\ETONOGESTREL
     Indication: CONTRACEPTION
     Dosage: VAG 1 RING EVERY 3 WEEKS?
     Route: 067

REACTIONS (3)
  - Alopecia [None]
  - Anxiety [None]
  - Self esteem decreased [None]

NARRATIVE: CASE EVENT DATE: 20111228
